FAERS Safety Report 6842849-1 (Version None)
Quarter: 2010Q3

REPORT INFORMATION
  Report Type: 
  Country: None (occurrence: None)
  Receive Date: 20100709
  Receipt Date: 20100624
  Transmission Date: 20110219
  Serious: Yes (Other)
  Sender: FDA-Public Use
  Company Number: 1000014900

PATIENT
  Age: 73 Year
  Sex: Female

DRUGS (5)
  1. MEMANTINE HCL [Suspect]
     Indication: DEMENTIA ALZHEIMER'S TYPE
     Dosage: SEE IMAGE
     Route: 048
     Dates: end: 20100504
  2. MEMANTINE HCL [Suspect]
     Indication: DEMENTIA ALZHEIMER'S TYPE
     Dosage: SEE IMAGE
     Route: 048
     Dates: start: 20100505
  3. COVERSYL (TABLETS) [Concomitant]
  4. LIPITOR [Concomitant]
  5. ASPIRIN [Concomitant]

REACTIONS (8)
  - AGGRESSION [None]
  - BALANCE DISORDER [None]
  - DISINHIBITION [None]
  - FATIGUE [None]
  - LIBIDO INCREASED [None]
  - MEMORY IMPAIRMENT [None]
  - SOMNOLENCE [None]
  - TINNITUS [None]
